FAERS Safety Report 21904309 (Version 2)
Quarter: 2023Q1

REPORT INFORMATION
  Report Type: Spontaneous
  Country: JP (occurrence: JP)
  Receive Date: 20230124
  Receipt Date: 20230209
  Transmission Date: 20230417
  Serious: Yes (Hospitalization)
  Sender: FDA-Public Use
  Company Number: JP-TEVA-2023-JP-2848642

PATIENT
  Age: 82 Year
  Sex: Female

DRUGS (3)
  1. CILOSTAZOL [Suspect]
     Active Substance: CILOSTAZOL
     Indication: Cerebral infarction
     Route: 065
  2. CLOPIDOGREL [Suspect]
     Active Substance: CLOPIDOGREL BISULFATE
     Indication: Cerebral infarction
     Route: 065
  3. ARGATROBAN [Suspect]
     Active Substance: ARGATROBAN
     Indication: Cerebral infarction
     Dosage: FOR A WEEK
     Route: 065

REACTIONS (2)
  - Colonic haematoma [Recovered/Resolved]
  - Anaemia [Unknown]
